FAERS Safety Report 24105069 (Version 1)
Quarter: 2024Q3

REPORT INFORMATION
  Report Type: Spontaneous
  Country: US (occurrence: None)
  Receive Date: 20240717
  Receipt Date: 20240717
  Transmission Date: 20241016
  Serious: Yes (Hospitalization)
  Sender: Public
  Company Number: None

PATIENT
  Age: 41 Year
  Sex: Female

DRUGS (3)
  1. WILATE - VON WILLEBRAND FACTOR/COAGULATION FACTOR VIII COMPLEX (HUMAN) [Suspect]
     Active Substance: HUMAN COAGULATION FACTOR VIII/VON WILLEBRAND FACTOR COMPLEX
     Indication: Von Willebrand^s disease
     Dosage: 5000 RCOF UNITS  THREE TIMES PER WEEK IV?
     Route: 042
     Dates: start: 202307
  2. HEPARIN L/L FLUSH SYR (5ML) [Concomitant]
  3. HUBER INF SET 20g X 1 1/2^ [Concomitant]

REACTIONS (3)
  - Vascular device infection [None]
  - Haemorrhage [None]
  - Staphylococcal infection [None]

NARRATIVE: CASE EVENT DATE: 20240601
